FAERS Safety Report 15900291 (Version 2)
Quarter: 2019Q1

REPORT INFORMATION
  Report Type: Spontaneous
  Country: US (occurrence: US)
  Receive Date: 20190201
  Receipt Date: 20190322
  Transmission Date: 20190417
  Serious: Yes (Death, Hospitalization, Other)
  Sender: FDA-Public Use
  Company Number: US-009507513-1901USA012264

PATIENT
  Sex: Male
  Weight: 126.98 kg

DRUGS (2)
  1. JANUVIA [Suspect]
     Active Substance: SITAGLIPTIN PHOSPHATE
     Indication: PRODUCT USED FOR UNKNOWN INDICATION
     Dosage: UNK
     Route: 048
     Dates: start: 20100327, end: 20101028
  2. VICTOZA [Suspect]
     Active Substance: LIRAGLUTIDE
     Indication: PRODUCT USED FOR UNKNOWN INDICATION
     Dosage: 18 MG/3ML INJECTABLE PEN, EVERY MORNING
     Route: 065
     Dates: start: 20101104, end: 20140101

REACTIONS (6)
  - Aortic valve disease [Unknown]
  - Pancreatic carcinoma [Unknown]
  - Chronic kidney disease [Unknown]
  - Death [Fatal]
  - Renal failure [Unknown]
  - Pancreatitis [Unknown]

NARRATIVE: CASE EVENT DATE: 20130830
